FAERS Safety Report 25081126 (Version 1)
Quarter: 2025Q1

REPORT INFORMATION
  Report Type: Spontaneous
  Country: RU (occurrence: RU)
  Receive Date: 20250315
  Receipt Date: 20250315
  Transmission Date: 20250409
  Serious: Yes (Other)
  Sender: IPSEN BIOPHARMACEUTICALS, INC.
  Company Number: RU-IPSEN Group, Research and Development-2025-05731

PATIENT
  Sex: Female

DRUGS (4)
  1. LANREOTIDE ACETATE [Suspect]
     Active Substance: LANREOTIDE ACETATE
     Indication: Carcinoid syndrome
     Dosage: SUBCUTANEOUS ONCE EVERY 28 DAYS
     Route: 058
     Dates: start: 20220909
  2. EVEROLIMUS [Suspect]
     Active Substance: EVEROLIMUS
     Indication: Product used for unknown indication
     Route: 065
  3. ACETYLCYSTEINE [Concomitant]
     Active Substance: ACETYLCYSTEINE
  4. OCTREOTIDE [Concomitant]
     Active Substance: OCTREOTIDE
     Dosage: ONCE EVERY 28 DAYS

REACTIONS (9)
  - Hepatic vein thrombosis [Unknown]
  - Hepatic infarction [Unknown]
  - Malignant neoplasm progression [Unknown]
  - Hepatic cyst [Unknown]
  - Haemangioma of bone [Unknown]
  - Haemosiderosis [Unknown]
  - Blood chromogranin A increased [Unknown]
  - Biliary tract disorder [Unknown]
  - Gallbladder disorder [Unknown]

NARRATIVE: CASE EVENT DATE: 20231115
